FAERS Safety Report 8835045 (Version 1)
Quarter: 2012Q4

REPORT INFORMATION
  Report Type: Report from Study
  Country: CA (occurrence: CA)
  Receive Date: 20121011
  Receipt Date: 20121011
  Transmission Date: 20130627
  Serious: Yes (Other)
  Sender: FDA-Public Use
  Company Number: CA-JNJFOC-20121001335

PATIENT
  Age: 34 None
  Sex: Male
  Weight: 117.03 kg

DRUGS (5)
  1. REMICADE [Suspect]
     Indication: PSORIASIS
     Route: 042
     Dates: start: 20100824
  2. METHOTREXATE [Concomitant]
     Route: 065
  3. DIOVAN [Concomitant]
     Route: 065
  4. FOLIC ACID [Concomitant]
     Route: 065
  5. AERIUS [Concomitant]
     Route: 065

REACTIONS (2)
  - Biopsy liver [Recovered/Resolved]
  - Discomfort [Recovered/Resolved]
